FAERS Safety Report 13495254 (Version 1)
Quarter: 2017Q2

REPORT INFORMATION
  Report Type: Spontaneous
  Country: US (occurrence: US)
  Receive Date: 20170427
  Receipt Date: 20170427
  Transmission Date: 20170830
  Serious: Yes (Disabling)
  Sender: FDA-Public Use
  Company Number: None

PATIENT
  Age: 65 Year
  Sex: Female
  Weight: 60.3 kg

DRUGS (12)
  1. CLONAZEPAM. [Concomitant]
     Active Substance: CLONAZEPAM
  2. THERAGRAM M [Concomitant]
     Active Substance: VITAMINS
  3. POLYETHELENE GLYCOL [Suspect]
     Active Substance: POLYETHYLENE GLYCOL 3350
     Indication: COLONOSCOPY
     Dosage: ORAL, TAKE ALL IN 5 HOUR?
     Route: 048
     Dates: start: 20170423, end: 20170423
  4. GABAPENTIN. [Concomitant]
     Active Substance: GABAPENTIN
  5. TECFIDERA [Concomitant]
     Active Substance: DIMETHYL FUMARATE
  6. EFFEXOR [Concomitant]
     Active Substance: VENLAFAXINE HYDROCHLORIDE
  7. VITAMIN D [Concomitant]
     Active Substance: CHOLECALCIFEROL
  8. ALPRAZOLAM. [Concomitant]
     Active Substance: ALPRAZOLAM
  9. ATORVASTATIN [Concomitant]
     Active Substance: ATORVASTATIN
  10. MOEXIPRIL [Concomitant]
     Active Substance: MOEXIPRIL HYDROCHLORIDE
  11. GLUCOSAMINE AND CHONDROITIN [Concomitant]
     Active Substance: CHONDROITIN SULFATE (BOVINE)\GLUCOSAMINE HYDROCHLORIDE
  12. EXCEDRIN [Concomitant]
     Active Substance: ACETAMINOPHEN\ASPIRIN\CAFFEINE

REACTIONS (6)
  - Asthenia [None]
  - Headache [None]
  - Vomiting [None]
  - Gait disturbance [None]
  - Multiple sclerosis [None]
  - Confusional state [None]

NARRATIVE: CASE EVENT DATE: 20170424
